FAERS Safety Report 9912668 (Version 1)
Quarter: 2014Q1

REPORT INFORMATION
  Report Type: Spontaneous
  Country: US (occurrence: None)
  Receive Date: 20140218
  Receipt Date: 20140218
  Transmission Date: 20141002
  Serious: Yes (Other)
  Sender: FDA-Public Use
  Company Number: None

PATIENT
  Age: 57 Year
  Sex: Female
  Weight: 95.26 kg

DRUGS (1)
  1. SOLU MEDROL [Suspect]
     Indication: HYPERSENSITIVITY
     Route: 042

REACTIONS (2)
  - Arthralgia [None]
  - Pain in extremity [None]
